FAERS Safety Report 5265026-7 (Version None)
Quarter: 2007Q1

REPORT INFORMATION
  Report Type: 
  Country: None (occurrence: None)
  Receive Date: 20061121
  Receipt Date: 20061020
  Transmission Date: 20070707
  Serious: No
  Sender: FDA-Public Use
  Company Number: TPA2006A01838

PATIENT
  Age: 63 Year
  Sex: Male
  Weight: 59.8748 kg

DRUGS (20)
  1. ROZEREM [Suspect]
     Indication: INSOMNIA
     Dosage: SEE IMAGE
     Route: 048
     Dates: start: 20060929, end: 20061006
  2. ROZEREM [Suspect]
     Indication: INSOMNIA
     Dosage: SEE IMAGE
     Route: 048
     Dates: start: 20061006, end: 20061013
  3. REMERON [Concomitant]
  4. FOLIC ACID [Concomitant]
  5. VYTORIN (SIMVASTATIN, EZETIMIBE) [Concomitant]
  6. ASPIRIN [Concomitant]
  7. PROSTATE SR (PROSTATE GLAND EXTRACT) [Concomitant]
  8. MULTIVITAMIN [Concomitant]
  9. JOINT SOOTHER (ALL OTHER THERAPEUTIC PRODUCTS) [Concomitant]
  10. PROSTAMETTO (ALL OTHER THERAPEUTIC PRODUCTS) [Concomitant]
  11. L-CARNITINE (ALL OTHER NON-THERAPEUTIC PRODUCTS) [Concomitant]
  12. L-GLUTAMINE (ALL OTHER THERAPEUTIC PRODUCTS) [Concomitant]
  13. CO-ENZYME Q10 (ENZYMES) [Concomitant]
  14. GINKGO BILOBA (GINKGO BILOBA) [Concomitant]
  15. VITAMIN B6 [Concomitant]
  16. VITAMIN B12 [Concomitant]
  17. OMEGA 3 (FISH OIL) [Concomitant]
  18. ESTER C (CALCIUM ASCORBATE) [Concomitant]
  19. CALCIUM MAGNESIUM CITRATE WITH D (MAGNESIUM, CALCIUM, VITAMIN D NOS) [Concomitant]
  20. VITAMIN E [Concomitant]

REACTIONS (2)
  - DRUG INEFFECTIVE [None]
  - PRESCRIBED OVERDOSE [None]
